FAERS Safety Report 21975903 (Version 1)
Quarter: 2023Q1

REPORT INFORMATION
  Report Type: Spontaneous
  Country: US (occurrence: US)
  Receive Date: 20230210
  Receipt Date: 20230210
  Transmission Date: 20230417
  Serious: No
  Sender: FDA-Public Use
  Company Number: US-SANOFI-01477277

PATIENT
  Sex: Male

DRUGS (5)
  1. PLAVIX [Suspect]
     Active Substance: CLOPIDOGREL BISULFATE
  2. APIXABAN [Suspect]
     Active Substance: APIXABAN
  3. TYLENOL [Concomitant]
     Active Substance: ACETAMINOPHEN
  4. ATENOLOL [Concomitant]
     Active Substance: ATENOLOL
  5. FOLIC ACID [Concomitant]
     Active Substance: FOLIC ACID

REACTIONS (1)
  - Contraindicated product administered [Unknown]
